FAERS Safety Report 8505833-8 (Version None)
Quarter: 2012Q3

REPORT INFORMATION
  Report Type: 
  Country: None (occurrence: None)
  Receive Date: 20120702
  Receipt Date: 20120620
  Transmission Date: 20120928
  Serious: Yes (Death)
  Sender: FDA-Public Use
  Company Number: DSA_58063_2012

PATIENT

DRUGS (3)
  1. LEVAMISOLE [Suspect]
     Indication: COLON CANCER
     Dosage: 50 MG
  2. LEUCOVORIN CALCIUM [Suspect]
     Indication: COLON CANCER
     Dosage: 20MG/M2, INTRAVENOUS BOLUS
     Route: 040
  3. FLUOROURACIL [Suspect]
     Indication: COLON CANCER
     Dosage: 425 MG/M2, INTRAVENOUS BOLUS
     Route: 040

REACTIONS (1)
  - GASTROINTESTINAL INFECTION [None]
